FAERS Safety Report 6181089-9 (Version None)
Quarter: 2009Q2

REPORT INFORMATION
  Report Type: 
  Country: None (occurrence: None)
  Receive Date: 20090504
  Receipt Date: 20090504
  Transmission Date: 20091009
  Serious: Yes (Other)
  Sender: FDA-Public Use
  Company Number: None

PATIENT
  Age: 52 Year
  Sex: Female
  Weight: 56.6996 kg

DRUGS (1)
  1. DIVALPROEX SODIUM [Suspect]
     Indication: MIGRAINE
     Dosage: 500MG  ONCE @ BEDTIME PO
     Route: 048
     Dates: start: 20080321, end: 20090327

REACTIONS (6)
  - DIARRHOEA [None]
  - MALAISE [None]
  - POISONING [None]
  - PRODUCT SUBSTITUTION ISSUE [None]
  - VOMITING [None]
  - WEIGHT DECREASED [None]
